FAERS Safety Report 10723461 (Version 1)
Quarter: 2015Q1

REPORT INFORMATION
  Report Type: Spontaneous
  Country: US (occurrence: US)
  Receive Date: 20150120
  Receipt Date: 20150120
  Transmission Date: 20150721
  Serious: No
  Sender: FDA-Public Use
  Company Number: US-009507513-1501USA003705

PATIENT
  Age: 40 Year
  Sex: Male

DRUGS (1)
  1. JANUVIA [Suspect]
     Active Substance: SITAGLIPTIN PHOSPHATE
     Indication: TYPE 2 DIABETES MELLITUS
     Dosage: 100 MG, QD
     Route: 048
     Dates: start: 2013

REACTIONS (13)
  - Weight decreased [Unknown]
  - Rash [Recovered/Resolved]
  - Weight increased [Not Recovered/Not Resolved]
  - Lip swelling [Recovered/Resolved]
  - Hyperphagia [Unknown]
  - Dermatitis allergic [Not Recovered/Not Resolved]
  - Swelling face [Recovered/Resolved]
  - Erythema [Unknown]
  - Erythema [Not Recovered/Not Resolved]
  - Oropharyngeal pain [Recovered/Resolved]
  - Fatigue [Not Recovered/Not Resolved]
  - Swelling face [Recovered/Resolved]
  - Rhinorrhoea [Recovered/Resolved]

NARRATIVE: CASE EVENT DATE: 201411
